FAERS Safety Report 11284364 (Version 1)
Quarter: 2015Q3

REPORT INFORMATION
  Report Type: Spontaneous
  Country: CA (occurrence: CA)
  Receive Date: 20150720
  Receipt Date: 20150720
  Transmission Date: 20151125
  Serious: Yes (Other)
  Sender: FDA-Public Use
  Company Number: CA-BAYER-2012-052652

PATIENT
  Sex: Female

DRUGS (3)
  1. CANESTEN CREAM [Suspect]
     Active Substance: CLOTRIMAZOLE
     Indication: FUNGAL INFECTION
     Dosage: UNK
  2. CANESTEN CREAM [Suspect]
     Active Substance: CLOTRIMAZOLE
     Indication: FUNGAL INFECTION
  3. CANESTEN CREAM [Suspect]
     Active Substance: CLOTRIMAZOLE
     Indication: FUNGAL INFECTION

REACTIONS (5)
  - Product contamination [None]
  - Localised infection [None]
  - Drug ineffective [None]
  - Haemorrhage [None]
  - Product quality issue [None]
